FAERS Safety Report 4703782-4 (Version None)
Quarter: 2005Q2

REPORT INFORMATION
  Report Type: 
  Country: None (occurrence: None)
  Receive Date: 20050629
  Receipt Date: 20050629
  Transmission Date: 20051028
  Serious: Yes (Hospitalization)
  Sender: FDA-Public Use
  Company Number: None

PATIENT
  Age: 84 Year
  Sex: Female
  Weight: 60 kg

DRUGS (1)
  1. COUMADIN [Suspect]
     Indication: ATRIAL FIBRILLATION

REACTIONS (5)
  - ASTHENIA [None]
  - DIZZINESS [None]
  - DYSPNOEA [None]
  - DYSPNOEA EXERTIONAL [None]
  - FATIGUE [None]
